FAERS Safety Report 5912726-9 (Version None)
Quarter: 2008Q4

REPORT INFORMATION
  Report Type: 
  Country: None (occurrence: None)
  Receive Date: 20081008
  Receipt Date: 20080928
  Transmission Date: 20090506
  Serious: Yes (Hospitalization)
  Sender: FDA-Public Use
  Company Number: BR-ELI_LILLY_AND_COMPANY-BR200809006295

PATIENT
  Age: 70 Year
  Sex: Female

DRUGS (7)
  1. CYMBALTA [Suspect]
     Indication: MIGRAINE
     Dosage: 60 MG, DAILY (1/D)
     Route: 065
     Dates: start: 20080801
  2. VYTORIN [Concomitant]
     Dosage: UNK, UNKNOWN
     Route: 065
  3. RYTMONORM [Concomitant]
     Dosage: 600 MG, DAILY (1/D)
     Route: 065
  4. ASPIRIN [Concomitant]
     Dosage: 200 MG, DAILY (1/D)
     Route: 065
  5. BROMAZEPAM [Concomitant]
     Dosage: 6 MG, EACH EVENING
     Route: 065
  6. ALENDRONATE SODIUM [Concomitant]
     Dosage: 70 MG, WEEKLY (1/W)
     Route: 065
  7. ORMIGREIN /01755201/ [Concomitant]
     Indication: MIGRAINE
     Dosage: UNK, UNKNOWN
     Route: 065

REACTIONS (2)
  - DRUG INTERACTION [None]
  - MYOPATHY [None]
